FAERS Safety Report 6631673-0 (Version None)
Quarter: 2010Q1

REPORT INFORMATION
  Report Type: 
  Country: None (occurrence: None)
  Receive Date: 20100312
  Receipt Date: 20100308
  Transmission Date: 20100710
  Serious: Yes (Life-Threatening, Hospitalization)
  Sender: FDA-Public Use
  Company Number: FR-ASTRAZENECA-2010SE10113

PATIENT
  Age: 45 Year
  Sex: Male

DRUGS (5)
  1. MOPRAL [Suspect]
     Route: 048
     Dates: start: 20080101
  2. METHOTREXATE [Interacting]
     Indication: LYMPHOMA
     Dosage: 6G ONCE, THIRD LINE, THIRD COURSE, 3000MG/M2
     Route: 042
     Dates: start: 20080130, end: 20080130
  3. ETOPOSIDE [Concomitant]
     Indication: LYMPHOMA
     Route: 042
     Dates: start: 20080101
  4. CYTARABINE [Concomitant]
     Route: 042
  5. IFOSFAMIDE [Concomitant]
     Route: 042

REACTIONS (5)
  - ANURIA [None]
  - DIARRHOEA [None]
  - DRUG INTERACTION [None]
  - DRUG LEVEL INCREASED [None]
  - RENAL FAILURE [None]
